FAERS Safety Report 10509521 (Version 3)
Quarter: 2014Q4

REPORT INFORMATION
  Report Type: Report from Study
  Country: CA (occurrence: CA)
  Receive Date: 20141009
  Receipt Date: 20141022
  Transmission Date: 20150528
  Serious: Yes (Life-Threatening, Hospitalization)
  Sender: FDA-Public Use
  Company Number: CA-ROCHE-1287136

PATIENT
  Age: 68 Year
  Sex: Female
  Weight: 58 kg

DRUGS (15)
  1. TYLENOL ARTHRITIS PAIN [Concomitant]
     Active Substance: ACETAMINOPHEN
     Dosage: 6 PER DAY
     Route: 065
  2. PREDNISONE. [Concomitant]
     Active Substance: PREDNISONE
     Route: 065
  3. MICARDIS [Concomitant]
     Active Substance: TELMISARTAN
     Route: 065
  4. LEFLUNOMIDE. [Concomitant]
     Active Substance: LEFLUNOMIDE
     Route: 065
  5. NIFEDIPINE. [Concomitant]
     Active Substance: NIFEDIPINE
  6. ACTEMRA [Suspect]
     Active Substance: TOCILIZUMAB
     Indication: RHEUMATOID ARTHRITIS
     Route: 042
     Dates: start: 20131007
  7. ADALAT CC [Concomitant]
     Active Substance: NIFEDIPINE
  8. TRAMADOL HYDROCHLORIDE. [Concomitant]
     Active Substance: TRAMADOL HYDROCHLORIDE
  9. DETROL [Concomitant]
     Active Substance: TOLTERODINE TARTRATE
     Route: 065
  10. CAPSAICIN. [Concomitant]
     Active Substance: CAPSAICIN
  11. QUETIAPINE [Concomitant]
     Active Substance: QUETIAPINE
  12. ACTEMRA [Suspect]
     Active Substance: TOCILIZUMAB
     Route: 042
  13. ACTEMRA [Suspect]
     Active Substance: TOCILIZUMAB
     Route: 042
     Dates: start: 20140128
  14. TEMISARTAN [Concomitant]
  15. THYROXINE [Concomitant]
     Active Substance: LEVOTHYROXINE

REACTIONS (15)
  - Arthralgia [Not Recovered/Not Resolved]
  - Mean cell volume [Unknown]
  - Pleural effusion [Unknown]
  - Drug ineffective [Unknown]
  - Pain in extremity [Not Recovered/Not Resolved]
  - Weight increased [Unknown]
  - Pneumonia [Recovering/Resolving]
  - Empyema [Unknown]
  - Rash [Recovered/Resolved]
  - Dyspnoea [Unknown]
  - Blood pressure increased [Unknown]
  - Arthralgia [Unknown]
  - Lung infection [Unknown]
  - Unevaluable event [Unknown]
  - Synovial cyst [Unknown]

NARRATIVE: CASE EVENT DATE: 20131007
